FAERS Safety Report 10960773 (Version 1)
Quarter: 2015Q1

REPORT INFORMATION
  Report Type: Spontaneous
  Country: US (occurrence: US)
  Receive Date: 20150327
  Receipt Date: 20150327
  Transmission Date: 20150721
  Serious: Yes (Hospitalization, Other)
  Sender: FDA-Public Use
  Company Number: US-AMGEN-USASP2015027725

PATIENT
  Age: 89 Year
  Sex: Female

DRUGS (1)
  1. PROLIA [Suspect]
     Active Substance: DENOSUMAB
     Indication: OSTEOPOROSIS POSTMENOPAUSAL
     Dosage: UNK, UNK
     Route: 065

REACTIONS (11)
  - Hepatic cirrhosis [Unknown]
  - Acute myocardial infarction [Unknown]
  - Myalgia [Unknown]
  - Dizziness [Unknown]
  - Pain in extremity [Unknown]
  - Pain in jaw [Unknown]
  - Pleural effusion [Unknown]
  - Skin discolouration [Unknown]
  - Dyspnoea [Unknown]
  - Arterial thrombosis [Not Recovered/Not Resolved]
  - Arthralgia [Unknown]

NARRATIVE: CASE EVENT DATE: 201408
